FAERS Safety Report 7570404-7 (Version None)
Quarter: 2011Q2

REPORT INFORMATION
  Report Type: 
  Country: None (occurrence: None)
  Receive Date: 20110620
  Receipt Date: 20110610
  Transmission Date: 20111010
  Serious: Yes (Death, Life-Threatening, Hospitalization, Other)
  Sender: FDA-Public Use
  Company Number: WAES 0901USA02839

PATIENT
  Age: 60 Year
  Sex: Male

DRUGS (14)
  1. LITICAN [Concomitant]
  2. STAPHYCID CAPSULES [Concomitant]
  3. LACTULOSE [Concomitant]
  4. NEXIUM [Concomitant]
  5. MOTILIUM [Concomitant]
  6. VELCADE [Suspect]
     Indication: MULTIPLE MYELOMA
     Dosage: 2.29 MG, IV
     Route: 042
     Dates: start: 20090109, end: 20090302
  7. CLINDAMYCIN HCL [Concomitant]
  8. KONAKION [Concomitant]
  9. PLATELETS [Concomitant]
  10. CAP VORINOSTAT [Suspect]
     Indication: MULTIPLE MYELOMA
     Dosage: 400 MG DAILY, PO
     Route: 048
     Dates: start: 20090109, end: 20090302
  11. ROCEPHIN [Concomitant]
  12. ALLOPURINOL [Concomitant]
  13. BLOOD CELLS, RED DOXYCYCLINE [Concomitant]
  14. PENSTAPHO [Concomitant]

REACTIONS (22)
  - IMMUNODEFICIENCY [None]
  - HAEMOPTYSIS [None]
  - OXYGEN SATURATION DECREASED [None]
  - HYPERTENSION [None]
  - WHITE BLOOD CELL COUNT DECREASED [None]
  - SEPTIC SHOCK [None]
  - GENERAL PHYSICAL HEALTH DETERIORATION [None]
  - INAPPROPRIATE ANTIDIURETIC HORMONE SECRETION [None]
  - STAPHYLOCOCCAL INFECTION [None]
  - TACHYCARDIA [None]
  - HYPOTENSION [None]
  - RENAL FAILURE ACUTE [None]
  - WEIGHT INCREASED [None]
  - INTERNATIONAL NORMALISED RATIO INCREASED [None]
  - LACTIC ACIDOSIS [None]
  - HYPONATRAEMIA [None]
  - RED BLOOD CELL COUNT DECREASED [None]
  - PLEURAL EFFUSION [None]
  - THROMBOCYTOPENIA [None]
  - OEDEMA PERIPHERAL [None]
  - NAUSEA [None]
  - BRONCHOPNEUMONIA [None]
